FAERS Safety Report 5139359-9 (Version None)
Quarter: 2006Q4

REPORT INFORMATION
  Report Type: 
  Country: None (occurrence: None)
  Receive Date: 20061026
  Receipt Date: 20061026
  Transmission Date: 20070319
  Serious: No
  Sender: FDA-Public Use
  Company Number: None

PATIENT
  Age: 65 Year
  Sex: Female
  Weight: 73.5 kg

DRUGS (1)
  1. ONDANSETRON [Suspect]
     Indication: NAUSEA
     Dosage: 32MG   ONCE  IV
     Route: 042
     Dates: start: 20060808

REACTIONS (3)
  - DYSKINESIA [None]
  - INFUSION RELATED REACTION [None]
  - MUSCLE TWITCHING [None]
